FAERS Safety Report 6082906-3 (Version None)
Quarter: 2009Q1

REPORT INFORMATION
  Report Type: 
  Country: None (occurrence: None)
  Receive Date: 20090218
  Receipt Date: 20090216
  Transmission Date: 20090719
  Serious: Yes (Death)
  Sender: FDA-Public Use
  Company Number: BE-ABBOTT-09P-013-0557244-00

PATIENT
  Sex: Male
  Weight: 80 kg

DRUGS (1)
  1. LUCRIN TRI-DEPOT [Suspect]
     Indication: PROSTATE CANCER
     Dates: start: 20060618

REACTIONS (1)
  - CARDIAC FAILURE [None]
